FAERS Safety Report 20789624 (Version 1)
Quarter: 2022Q2

REPORT INFORMATION
  Report Type: Spontaneous
  Country: ES (occurrence: ES)
  Receive Date: 20220505
  Receipt Date: 20220505
  Transmission Date: 20220721
  Serious: Yes (Hospitalization, Other)
  Sender: FDA-Public Use
  Company Number: ES-FERRINGPH-2022FE01951

PATIENT
  Age: 35 Year
  Sex: Female

DRUGS (2)
  1. MESALAMINE [Suspect]
     Active Substance: MESALAMINE
     Indication: Colitis ulcerative
     Dosage: UNK
     Route: 048
     Dates: start: 2006
  2. AZATHIOPRINE [Suspect]
     Active Substance: AZATHIOPRINE
     Indication: Colitis ulcerative
     Dosage: UNK
     Route: 048
     Dates: start: 2006

REACTIONS (11)
  - Arthralgia [Unknown]
  - Diarrhoea [Unknown]
  - Pyrexia [Unknown]
  - Abdominal pain [Unknown]
  - Product dose omission in error [Unknown]
  - Iron deficiency [Unknown]
  - Vomiting [Unknown]
  - Colitis ulcerative [Recovered/Resolved]
  - Exposure during pregnancy [Unknown]
  - Diarrhoea haemorrhagic [Unknown]
  - Gastroenteritis [Unknown]

NARRATIVE: CASE EVENT DATE: 20060101
